FAERS Safety Report 24095559 (Version 2)
Quarter: 2024Q3

REPORT INFORMATION
  Report Type: Spontaneous
  Country: IT (occurrence: IT)
  Receive Date: 20240716
  Receipt Date: 20240723
  Transmission Date: 20241017
  Serious: Yes (Death, Life-Threatening, Hospitalization, Other)
  Sender: GLAXOSMITHKLINE
  Company Number: None

PATIENT

DRUGS (1)
  1. JEMPERLI [Suspect]
     Active Substance: DOSTARLIMAB-GXLY
     Indication: Endometrial cancer recurrent
     Dosage: 500 MG, Q3W
     Route: 042
     Dates: start: 20240606, end: 20240606

REACTIONS (8)
  - Multiple organ dysfunction syndrome [Fatal]
  - Pancytopenia [Not Recovered/Not Resolved]
  - Immune-mediated myocarditis [Not Recovered/Not Resolved]
  - Immune-mediated myositis [Not Recovered/Not Resolved]
  - Immune-mediated myasthenia gravis [Not Recovered/Not Resolved]
  - Gastric haemorrhage [Unknown]
  - Thrombocytopenia [Unknown]
  - Rhabdomyolysis [Unknown]

NARRATIVE: CASE EVENT DATE: 20240623
